FAERS Safety Report 11909329 (Version 2)
Quarter: 2016Q3

REPORT INFORMATION
  Report Type: Spontaneous
  Country: US (occurrence: US)
  Receive Date: 20160112
  Receipt Date: 20160720
  Transmission Date: 20161109
  Serious: No
  Sender: FDA-Public Use
  Company Number: US-TEVA-608207USA

PATIENT
  Age: 44 Year
  Sex: Female

DRUGS (3)
  1. ZECUITY [Suspect]
     Active Substance: SUMATRIPTAN SUCCINATE
     Indication: MIGRAINE
     Route: 062
  2. NAPROXEN. [Concomitant]
     Active Substance: NAPROXEN
  3. ZECUITY [Suspect]
     Active Substance: SUMATRIPTAN SUCCINATE
     Route: 062
     Dates: start: 20160621

REACTIONS (3)
  - Somnolence [Unknown]
  - Drug ineffective [Unknown]
  - Application site dryness [Unknown]

NARRATIVE: CASE EVENT DATE: 20151106
